FAERS Safety Report 16484786 (Version 1)
Quarter: 2019Q2

REPORT INFORMATION
  Report Type: Spontaneous
  Country: US (occurrence: US)
  Receive Date: 20190516
  Receipt Date: 20190516
  Transmission Date: 20190711
  Serious: Yes (Hospitalization)
  Sender: FDA-Public Use
  Company Number: None

PATIENT
  Age: 82 Year
  Sex: Female

DRUGS (13)
  1. ADVAIR HFA [Concomitant]
     Active Substance: FLUTICASONE PROPIONATE\SALMETEROL XINAFOATE
  2. FUROSEMIDE. [Concomitant]
     Active Substance: FUROSEMIDE
  3. WARFARIN [Concomitant]
     Active Substance: WARFARIN
  4. CLONAZOPAM [Concomitant]
     Active Substance: CLONAZEPAM
  5. K-TAB [Concomitant]
     Active Substance: POTASSIUM CHLORIDE
  6. TROSPIUM [Concomitant]
     Active Substance: TROSPIUM
  7. ATROVENT HFA [Concomitant]
     Active Substance: IPRATROPIUM BROMIDE
  8. OXYCODONE [Concomitant]
     Active Substance: OXYCODONE
  9. FLONASE [Concomitant]
     Active Substance: FLUTICASONE PROPIONATE
  10. LETAIRIS [Suspect]
     Active Substance: AMBRISENTAN
     Indication: PULMONARY ARTERIAL HYPERTENSION
     Route: 048
     Dates: start: 201208
  11. DIL-XF [Concomitant]
  12. CALCIUM [Concomitant]
     Active Substance: CALCIUM
  13. SILDANAFIL [Concomitant]

REACTIONS (5)
  - Heart rate increased [None]
  - Bronchitis [None]
  - Acute respiratory failure [None]
  - Hypoxia [None]
  - Human metapneumovirus test positive [None]

NARRATIVE: CASE EVENT DATE: 20190510
